FAERS Safety Report 5074304-6 (Version None)
Quarter: 2006Q3

REPORT INFORMATION
  Report Type: 
  Country: None (occurrence: None)
  Receive Date: 20060808
  Receipt Date: 20050711
  Transmission Date: 20061208
  Serious: No
  Sender: FDA-Public Use
  Company Number: US-AMGEN-KDL142305

PATIENT
  Age: 78 Year
  Sex: Female
  Weight: 44.5 kg

DRUGS (13)
  1. PROCRIT [Suspect]
     Indication: ANAEMIA
     Route: 058
     Dates: start: 20041201
  2. ACTONEL [Concomitant]
  3. HYZAAR [Concomitant]
  4. NORVASC [Concomitant]
     Route: 048
  5. PREMPRO 14/14 [Concomitant]
  6. NEURONTIN [Concomitant]
  7. ACETAMINOPHEN [Concomitant]
  8. ASPIRIN [Concomitant]
  9. EXCEDRIN (MIGRAINE) [Concomitant]
  10. VITAMIN CAP [Concomitant]
  11. XALATAN [Concomitant]
     Route: 047
  12. TIMOPTIC [Concomitant]
     Route: 047
  13. SPIRIVA [Concomitant]
     Route: 045

REACTIONS (2)
  - CONSTIPATION [None]
  - FAECES HARD [None]
